FAERS Safety Report 19194882 (Version 8)
Quarter: 2021Q4

REPORT INFORMATION
  Report Type: Report from Study
  Country: BR (occurrence: BR)
  Receive Date: 20210429
  Receipt Date: 20211223
  Transmission Date: 20220303
  Serious: Yes (Other)
  Sender: FDA-Public Use
  Company Number: NVSC2021BR009676

PATIENT
  Age: 81 Year
  Sex: Female

DRUGS (11)
  1. KISQALI [Suspect]
     Active Substance: RIBOCICLIB
     Indication: Breast cancer stage IV
     Dosage: 600 DF, QD (FOR 21 DAYS EVERY 28 DAYS), 3 TABLETS PER DAY
     Route: 065
     Dates: start: 20201007, end: 20210114
  2. KISQALI [Suspect]
     Active Substance: RIBOCICLIB
     Dosage: 3 DF
     Route: 065
     Dates: start: 202010
  3. KISQALI [Suspect]
     Active Substance: RIBOCICLIB
     Dosage: 2 DF
     Route: 065
     Dates: start: 20201007
  4. KISQALI [Suspect]
     Active Substance: RIBOCICLIB
     Dosage: 400 MG, QD (FOR 21 DAYS EVERY 28 DAYS), 2 TABLETS PER DAY
     Route: 065
     Dates: start: 20210115
  5. KISQALI [Suspect]
     Active Substance: RIBOCICLIB
     Dosage: 2 DF
     Route: 065
     Dates: start: 202101
  6. KISQALI [Suspect]
     Active Substance: RIBOCICLIB
     Dosage: UNK
     Route: 065
     Dates: start: 20210810
  7. KISQALI [Suspect]
     Active Substance: RIBOCICLIB
     Dosage: 2 DF
     Route: 065
     Dates: start: 202101
  8. FEMARA [Suspect]
     Active Substance: LETROZOLE
     Indication: Breast cancer stage IV
     Dosage: 2.5 MG, QD
     Route: 065
     Dates: start: 202010
  9. FEMARA [Suspect]
     Active Substance: LETROZOLE
     Dosage: UNK
     Route: 065
  10. CALCIUM [Concomitant]
     Active Substance: CALCIUM
     Indication: Product used for unknown indication
     Dosage: UNK
     Route: 065
  11. VITAMIN D [Concomitant]
     Active Substance: VITAMIN D NOS
     Indication: Product used for unknown indication
     Dosage: UNK
     Route: 065

REACTIONS (56)
  - Immunosuppression [Unknown]
  - Metastases to bone [Recovering/Resolving]
  - Breast cancer female [Unknown]
  - Malignant neoplasm progression [Unknown]
  - Multiple sclerosis [Unknown]
  - Acquired diaphragmatic eventration [Unknown]
  - Deafness [Unknown]
  - Tongue disorder [Unknown]
  - Lymphadenopathy [Recovered/Resolved]
  - Eating disorder [Unknown]
  - Decreased appetite [Recovered/Resolved]
  - White blood cell count decreased [Unknown]
  - Dysgeusia [Unknown]
  - Haematotoxicity [Unknown]
  - Pleural effusion [Unknown]
  - Atelectasis [Unknown]
  - Osteosclerosis [Unknown]
  - White matter lesion [Unknown]
  - Arteriosclerosis [Unknown]
  - Cardiac disorder [Unknown]
  - Mediastinal disorder [Unknown]
  - Intervertebral disc disorder [Unknown]
  - Pulmonary mass [Unknown]
  - Bone metabolism disorder [Recovered/Resolved]
  - Bone metabolism disorder [Recovering/Resolving]
  - Bone lesion [Recovered/Resolved]
  - Bone lesion [Unknown]
  - Pleural disorder [Unknown]
  - Metabolic disorder [Recovered/Resolved]
  - Metabolic disorder [Recovering/Resolving]
  - Gastritis [Unknown]
  - Bone disorder [Recovering/Resolving]
  - Pain of skin [Unknown]
  - Intervertebral disc protrusion [Recovering/Resolving]
  - Tooth disorder [Unknown]
  - Tumour marker decreased [Unknown]
  - Hypoacusis [Unknown]
  - Pain in extremity [Unknown]
  - Drug intolerance [Unknown]
  - Insomnia [Not Recovered/Not Resolved]
  - Tumour marker increased [Unknown]
  - Back pain [Recovered/Resolved]
  - Arthralgia [Unknown]
  - Spinal pain [Not Recovered/Not Resolved]
  - Jaw disorder [Unknown]
  - Headache [Not Recovered/Not Resolved]
  - Dental caries [Unknown]
  - Mouth swelling [Unknown]
  - Back pain [Recovered/Resolved]
  - Malaise [Unknown]
  - Rheumatic disorder [Not Recovered/Not Resolved]
  - Pain [Not Recovered/Not Resolved]
  - Adverse food reaction [Unknown]
  - Fatigue [Unknown]
  - Depression [Unknown]
  - Anxiety [Unknown]

NARRATIVE: CASE EVENT DATE: 20201101
